FAERS Safety Report 8050659 (Version 8)
Quarter: 2013Q1

REPORT INFORMATION
  Report Type: Report from Study
  Country: US (occurrence: US)
  Receive Date: 20110725
  Receipt Date: 20130109
  Transmission Date: 20140127
  Serious: Yes (Hospitalization)
  Sender: FDA-Public Use
  Company Number: US-JNJFOC-20110706854

PATIENT
  Age: 11 Year
  Sex: Male
  Weight: 35.3 kg

DRUGS (5)
  1. REMICADE [Suspect]
     Indication: CROHN^S DISEASE
     Route: 042
     Dates: end: 20090709
  2. REMICADE [Suspect]
     Indication: CROHN^S DISEASE
     Route: 042
     Dates: start: 20070112
  3. HUMIRA [Concomitant]
     Dates: start: 20090730
  4. METHOTREXATE [Concomitant]
  5. PREDNISONE [Concomitant]

REACTIONS (2)
  - Crohn^s disease [Recovered/Resolved]
  - Adenoviral upper respiratory infection [Recovered/Resolved]
